FAERS Safety Report 7680446-9 (Version None)
Quarter: 2011Q3

REPORT INFORMATION
  Report Type: 
  Country: None (occurrence: None)
  Receive Date: 20110812
  Receipt Date: 20110804
  Transmission Date: 20111222
  Serious: Yes (Other)
  Sender: FDA-Public Use
  Company Number: US-BAYER-2011-018991

PATIENT
  Age: 35 Year
  Sex: Female
  Weight: 61.678 kg

DRUGS (9)
  1. OXYCODONE HCL [Concomitant]
     Dosage: 1 TAB/EVERY 4 HOURS, AS NEEDED
     Route: 048
  2. YAZ [Suspect]
     Indication: PREMENSTRUAL SYNDROME
     Dosage: UNK
     Dates: start: 20090101, end: 20091101
  3. PROTONIX [Concomitant]
  4. YAZ [Suspect]
     Indication: CONTRACEPTION
     Dosage: UNK
     Route: 048
     Dates: start: 20080601, end: 20080901
  5. MEDROXYPROGESTERONE [Concomitant]
     Dosage: UNK
     Dates: start: 20000101, end: 20100101
  6. ACETAMINOPHEN [Concomitant]
  7. AMBIEN [Concomitant]
     Dosage: DAILY DOSE 5 MG
     Route: 048
  8. LEVAQUIN [Concomitant]
     Dosage: DAILY
     Route: 048
  9. HYDROCODONE [Concomitant]

REACTIONS (7)
  - CHOLECYSTITIS [None]
  - INJURY [None]
  - ANXIETY [None]
  - CHOLELITHIASIS [None]
  - PAIN [None]
  - EMOTIONAL DISTRESS [None]
  - GALLBLADDER INJURY [None]
